FAERS Safety Report 7647398-9 (Version None)
Quarter: 2011Q3

REPORT INFORMATION
  Report Type: 
  Country: None (occurrence: None)
  Receive Date: 20110726
  Receipt Date: 20110718
  Transmission Date: 20111222
  Serious: Yes (Hospitalization)
  Sender: FDA-Public Use
  Company Number: 2011142089

PATIENT
  Age: 49 Year
  Sex: Male

DRUGS (3)
  1. CARBOPLATIN [Suspect]
     Dosage: INTRAVENOUS
     Route: 042
     Dates: start: 20110501, end: 20110601
  2. VINORELBINE [Suspect]
     Dosage: INTRAVENOUS
     Route: 042
     Dates: start: 20110501, end: 20110601
  3. DALTEPARIN SODIUM [Suspect]
     Indication: LUNG NEOPLASM MALIGNANT
     Dosage: 5000 IU, 1X/DAY, SUBCUTANEOUS
     Route: 058
     Dates: start: 20110302, end: 20110606

REACTIONS (3)
  - PLATELET COUNT DECREASED [None]
  - MYALGIA [None]
  - NEUTROPENIC SEPSIS [None]
